FAERS Safety Report 6096173-8 (Version None)
Quarter: 2009Q1

REPORT INFORMATION
  Report Type: 
  Country: None (occurrence: None)
  Receive Date: 20090227
  Receipt Date: 20080922
  Transmission Date: 20090719
  Serious: No
  Sender: FDA-Public Use
  Company Number: A0748570A

PATIENT
  Age: 60 Year
  Sex: Female

DRUGS (5)
  1. LAMICTAL [Suspect]
     Dosage: 25MG PER DAY
     Route: 048
     Dates: start: 20080801, end: 20080916
  2. DEPAKOTE [Concomitant]
  3. VITAMIN B COMPLEX CAP [Concomitant]
  4. BENICAR [Concomitant]
  5. LOVASTATIN [Concomitant]

REACTIONS (7)
  - CHILLS [None]
  - LIP SWELLING [None]
  - LYMPHADENOPATHY [None]
  - OEDEMA MOUTH [None]
  - OROPHARYNGEAL PAIN [None]
  - RASH [None]
  - SWOLLEN TONGUE [None]
